FAERS Safety Report 10008025 (Version 1)
Quarter: 2014Q1

REPORT INFORMATION
  Report Type: Spontaneous
  Country: US (occurrence: US)
  Receive Date: 20140313
  Receipt Date: 20140313
  Transmission Date: 20141002
  Serious: Yes (Other)
  Sender: FDA-Public Use
  Company Number: US-ROXANE LABORATORIES, INC.-2014-RO-00401RO

PATIENT
  Age: 7 Year
  Sex: Female

DRUGS (2)
  1. MONTELUKAST SODIUM [Suspect]
     Indication: MULTIPLE ALLERGIES
     Dosage: 5 MG
     Route: 048
     Dates: start: 201308
  2. MONTELUKAST SODIUM [Suspect]
     Indication: ASTHMA

REACTIONS (2)
  - Sinus tachycardia [Unknown]
  - Palpitations [Unknown]
